FAERS Safety Report 18534106 (Version 7)
Quarter: 2022Q2

REPORT INFORMATION
  Report Type: Spontaneous
  Country: US (occurrence: US)
  Receive Date: 20201123
  Receipt Date: 20220603
  Transmission Date: 20220721
  Serious: Yes (Other)
  Sender: FDA-Public Use
  Company Number: US-PFIZER INC-2019147510

PATIENT
  Age: 47 Year
  Sex: Female

DRUGS (1)
  1. XELJANZ XR [Suspect]
     Active Substance: TOFACITINIB CITRATE
     Indication: Rheumatoid arthritis
     Dosage: 11 MG, 1X/DAY
     Route: 048
     Dates: start: 2017

REACTIONS (10)
  - Blindness [Unknown]
  - Drug dependence [Not Recovered/Not Resolved]
  - Product dose omission issue [Unknown]
  - Insomnia [Unknown]
  - Pain [Unknown]
  - Illness [Unknown]
  - Migraine [Unknown]
  - Blood cholesterol increased [Unknown]
  - Hypertension [Unknown]
  - Finger deformity [Unknown]
